FAERS Safety Report 20454786 (Version 1)
Quarter: 2022Q1

REPORT INFORMATION
  Report Type: Spontaneous
  Country: US (occurrence: US)
  Receive Date: 20220210
  Receipt Date: 20220210
  Transmission Date: 20220423
  Serious: Yes (Other)
  Sender: FDA-Public Use
  Company Number: US-Atnahs Limited-ATNAHS20220100622

PATIENT
  Sex: Female
  Weight: 99.88 kg

DRUGS (8)
  1. VALIUM [Suspect]
     Active Substance: DIAZEPAM
     Indication: Product used for unknown indication
     Dosage: 2MG ONCE A DAY AS REQUIRED
     Route: 048
     Dates: start: 20170408
  2. VALIUM [Suspect]
     Active Substance: DIAZEPAM
     Dosage: 2MG ONCE A DAY AS REQUIRED
     Route: 048
  3. OCREVUS [Suspect]
     Active Substance: OCRELIZUMAB
     Indication: Product used for unknown indication
     Dosage: INITIAL DOSE: 300MG/ML - 1 VIAL REPORTED AFTER 15-DAUS
     Route: 042
     Dates: start: 20190710
  4. OCREVUS [Suspect]
     Active Substance: OCRELIZUMAB
     Dosage: SUBSEQUENT DOSE - 600MG (2X 300MG/10ML) ADMINISTERED INTRAVENOUSLY ONCE IN 6 MONTHS
     Route: 042
  5. LOSARTAN POTASSIUM [Suspect]
     Active Substance: LOSARTAN POTASSIUM
     Indication: Product used for unknown indication
     Route: 048
  6. TOPIRAMATE [Suspect]
     Active Substance: TOPIRAMATE
     Indication: Product used for unknown indication
     Route: 048
     Dates: start: 20170227
  7. ADDERALL XR [Suspect]
     Active Substance: AMPHETAMINE ASPARTATE\AMPHETAMINE SULFATE\DEXTROAMPHETAMINE SACCHARATE\DEXTROAMPHETAMINE SULFATE
     Indication: Product used for unknown indication
     Dosage: X2 REFILLS - PATIENT WILL ONLY FILL THIS IF THE NUVIGIL IS DENIED
     Route: 048
     Dates: start: 20190710
  8. NUVIGIL [Suspect]
     Active Substance: ARMODAFINIL
     Indication: Product used for unknown indication
     Route: 048
     Dates: start: 20190710

REACTIONS (21)
  - Blindness [Unknown]
  - Hypertension [Unknown]
  - Migraine [Unknown]
  - Thyroid disorder [Unknown]
  - Fatigue [Unknown]
  - Night sweats [Unknown]
  - Pruritus [Unknown]
  - Ear pain [Unknown]
  - Eye pain [Unknown]
  - Constipation [Unknown]
  - Diarrhoea [Unknown]
  - Nocturia [Unknown]
  - Muscular weakness [Unknown]
  - Memory impairment [Unknown]
  - Disturbance in attention [Unknown]
  - Headache [Unknown]
  - Coordination abnormal [Unknown]
  - Hypoaesthesia [Unknown]
  - Paraesthesia [Unknown]
  - Balance disorder [Unknown]
  - Asthenia [Unknown]
